FAERS Safety Report 6193761-5 (Version None)
Quarter: 2009Q2

REPORT INFORMATION
  Report Type: 
  Country: None (occurrence: None)
  Receive Date: 20090518
  Receipt Date: 20090518
  Transmission Date: 20091009
  Serious: Yes (Other)
  Sender: FDA-Public Use
  Company Number: DE-PFIZER INC-2009176860

PATIENT
  Age: 71 Year

DRUGS (3)
  1. SORTIS [Suspect]
     Dosage: 30MG DAILY
     Route: 048
  2. SORTIS [Suspect]
     Dosage: 20MG DAILY
     Route: 048
  3. SORTIS [Suspect]
     Dosage: 40MG DAILY
     Route: 048
     Dates: start: 19990101

REACTIONS (2)
  - HYPERTONIA [None]
  - MUSCLE ATROPHY [None]
